FAERS Safety Report 7859823-9 (Version None)
Quarter: 2011Q4

REPORT INFORMATION
  Report Type: 
  Country: None (occurrence: None)
  Receive Date: 20111027
  Receipt Date: 20111015
  Transmission Date: 20120403
  Serious: Yes (Hospitalization, Other)
  Sender: FDA-Public Use
  Company Number: TH-PFIZER INC-2011247247

PATIENT
  Age: 39 Year
  Sex: Male
  Weight: 53.7 kg

DRUGS (12)
  1. TENOFOVIR DISOPROXIL FUMARATE [Concomitant]
     Indication: HIV INFECTION
     Dosage: ONCE DAILY, BEDTIME
     Route: 048
     Dates: start: 20111004, end: 20111012
  2. VALPROATE SODIUM [Concomitant]
     Indication: CONVULSION
     Dosage: TWICE A DAY
     Route: 048
     Dates: end: 20111013
  3. FERROUS FUMARATE [Concomitant]
     Indication: ANAEMIA
     Dosage: 3 TIMES DAILY
     Route: 048
     Dates: end: 20111013
  4. FLUCONAZOLE [Suspect]
     Indication: MENINGITIS CRYPTOCOCCAL
     Dosage: 200 MG, 1X/DAY
     Route: 048
     Dates: start: 20110929, end: 20111012
  5. MAGNESIUM OXIDE [Concomitant]
     Indication: SUPPLEMENTATION THERAPY
     Dosage: 3 TIMES DAILY
     Route: 048
     Dates: end: 20111013
  6. LAMIVUDINE [Concomitant]
     Indication: HIV INFECTION
     Dosage: ONCE DAILY, BEDTIME
     Route: 048
     Dates: start: 20111004, end: 20111012
  7. AZITHROMYCIN [Concomitant]
     Indication: OPPORTUNISTIC INFECTION PROPHYLAXIS
     Dosage: ONCE A WEEK
     Route: 048
     Dates: end: 20111007
  8. ACETAMINOPHEN [Concomitant]
     Indication: HEADACHE
     Dosage: PRN
     Route: 048
     Dates: end: 20111013
  9. AMLODIPINE [Concomitant]
     Indication: HYPERTENSION
     Dosage: ONCE DAILY
     Route: 048
     Dates: end: 20111013
  10. MULTIVITAMIN [Concomitant]
     Indication: SUPPLEMENTATION THERAPY
     Dosage: THREE TIMES DAILY
     Route: 048
     Dates: end: 20111013
  11. EFAVIRENZ [Concomitant]
     Indication: HIV INFECTION
     Dosage: ONCE DAILY, BEDTIME
     Route: 048
     Dates: start: 20111004, end: 20111012
  12. COTRIM [Concomitant]
     Indication: OPPORTUNISTIC INFECTION PROPHYLAXIS
     Dosage: ONCE DAILY
     Route: 048
     Dates: end: 20111013

REACTIONS (3)
  - MENINGITIS CRYPTOCOCCAL [None]
  - TREATMENT FAILURE [None]
  - INTRACRANIAL PRESSURE INCREASED [None]
